FAERS Safety Report 9209874 (Version 1)
Quarter: 2013Q1

REPORT INFORMATION
  Report Type: Spontaneous
  Country: US (occurrence: None)
  Receive Date: 20120820
  Receipt Date: 20120820
  Transmission Date: 20140127
  Serious: No
  Sender: FDA-Public Use
  Company Number: 1000037196

PATIENT
  Age: 49 Year
  Sex: Female

DRUGS (7)
  1. VIIBRYD [Suspect]
     Indication: ANXIETY
     Dosage: (10 MG 1 IN 1 D)
     Route: 048
     Dates: start: 201204, end: 2012
  2. CALCUIM (CALCUIM) [Concomitant]
  3. VITAMIN B (VITAMIN B COMPLEX) (VITAMIN B COMPLEX) [Concomitant]
  4. MULTIVIATAMIN (MULTIVITAMIN) [Concomitant]
  5. ADVIL (IBUPROFEN) (IBUPROFEN) [Concomitant]
  6. CLARITIN (LORATADINE) (LORATADINE) [Concomitant]
  7. SUDAFED (PSEUDOEPHEDRINE) (PSEUDOEPHEDRINE) [Concomitant]

REACTIONS (4)
  - Insomnia [None]
  - Diarrhoea [None]
  - Flatulence [None]
  - Off label use [None]
